FAERS Safety Report 21404956 (Version 1)
Quarter: 2022Q4

REPORT INFORMATION
  Report Type: Spontaneous
  Country: US (occurrence: US)
  Receive Date: 20221003
  Receipt Date: 20221003
  Transmission Date: 20230113
  Serious: No
  Sender: FDA-Public Use
  Company Number: US-BoehringerIngelheim-2022-BI-195376

PATIENT
  Sex: Female

DRUGS (1)
  1. JARDIANCE [Suspect]
     Active Substance: EMPAGLIFLOZIN
     Indication: Diabetes mellitus
     Dates: start: 202011

REACTIONS (6)
  - Nephrolithiasis [Unknown]
  - Weight decreased [Unknown]
  - Blood pressure increased [Unknown]
  - Hypoglycaemia [Unknown]
  - Glomerular filtration rate decreased [Unknown]
  - Osteoporosis [Unknown]
